FAERS Safety Report 9707610 (Version 3)
Quarter: 2013Q4

REPORT INFORMATION
  Report Type: Spontaneous
  Country: US (occurrence: US)
  Receive Date: 20131125
  Receipt Date: 20131210
  Transmission Date: 20140711
  Serious: No
  Sender: FDA-Public Use
  Company Number: US-TEVA-377737USA

PATIENT
  Age: 37 Year
  Sex: Female
  Weight: 57.2 kg

DRUGS (2)
  1. PARAGARD 380A [Suspect]
     Indication: CONTRACEPTION
     Route: 015
     Dates: end: 20121221
  2. EYE DROPS [Concomitant]
     Indication: OCULAR HYPERTENSION

REACTIONS (2)
  - Medical device complication [Not Recovered/Not Resolved]
  - Pelvic pain [Unknown]
